FAERS Safety Report 15316878 (Version 5)
Quarter: 2019Q1

REPORT INFORMATION
  Report Type: Spontaneous
  Country: US (occurrence: US)
  Receive Date: 20180824
  Receipt Date: 20190329
  Transmission Date: 20190417
  Serious: Yes (Life-Threatening)
  Sender: FDA-Public Use
  Company Number: US-PFIZER INC-2018339767

PATIENT
  Age: 72 Year
  Sex: Male

DRUGS (11)
  1. ALDACTONE [Suspect]
     Active Substance: SPIRONOLACTONE
     Dosage: 75 MG, 1X/DAY,(50MG AM ,25MG NOON)
     Dates: start: 1980
  2. EPLERENONE. [Suspect]
     Active Substance: EPLERENONE
     Indication: HYPERALDOSTERONISM
     Dosage: 50 MG, UNK
     Dates: start: 20180803
  3. ALTACE [Concomitant]
     Active Substance: RAMIPRIL
     Dosage: 2.5 MG, UNK
     Dates: start: 1980
  4. BUFFERIN [ACETYLSALICYLIC ACID] [Concomitant]
     Dosage: UNK
  5. ALDACTONE [Suspect]
     Active Substance: SPIRONOLACTONE
     Indication: HYPERALDOSTERONISM
     Dosage: UNK
     Dates: start: 20180823
  6. SPIRONOLACTONE. [Suspect]
     Active Substance: SPIRONOLACTONE
     Indication: HYPERALDOSTERONISM
     Dosage: 25 MG,
     Dates: start: 20180811
  7. SPIRONOLACTONE. [Suspect]
     Active Substance: SPIRONOLACTONE
     Dosage: 25 MG, UNK
     Dates: start: 20180731
  8. NEXIUM [Concomitant]
     Active Substance: ESOMEPRAZOLE MAGNESIUM
     Dosage: 40 MG, UNK
     Dates: start: 1980
  9. INSPRA [Suspect]
     Active Substance: EPLERENONE
     Indication: HYPERALDOSTERONISM
     Dosage: 50 MG, UNK
     Dates: start: 20180816
  10. SPIRONOLACTONE. [Suspect]
     Active Substance: SPIRONOLACTONE
     Dosage: 25 MG, 3X/DAY
     Dates: start: 20180725
  11. SPIRONOLACTONE. [Suspect]
     Active Substance: SPIRONOLACTONE
     Dosage: 25 MG,
     Dates: start: 20180725

REACTIONS (9)
  - Hypoaesthesia [Unknown]
  - Product formulation issue [Unknown]
  - Ocular discomfort [Unknown]
  - Asthenia [Unknown]
  - Dizziness [Unknown]
  - Ear discomfort [Unknown]
  - Abdominal discomfort [Unknown]
  - Drug intolerance [Unknown]
  - Drug ineffective [Not Recovered/Not Resolved]

NARRATIVE: CASE EVENT DATE: 2018
